FAERS Safety Report 17296484 (Version 3)
Quarter: 2021Q4

REPORT INFORMATION
  Report Type: Spontaneous
  Country: DE (occurrence: DE)
  Receive Date: 20200121
  Receipt Date: 20211004
  Transmission Date: 20220303
  Serious: Yes (Death, Hospitalization, Other)
  Sender: FDA-Public Use
  Company Number: DE-009507513-1910DEU015421

PATIENT
  Age: 55 Year
  Sex: Female

DRUGS (35)
  1. CARBOPLATIN [Suspect]
     Active Substance: CARBOPLATIN
     Indication: Non-small cell lung cancer metastatic
     Dosage: 1 DOSAGE FORM, QW, FIRST-LINE THERAPY; AUC5, ON DAY1, EVERY 3 WEEKS; FIRST CYCLE
     Route: 065
     Dates: start: 20190502, end: 20190502
  2. CARBOPLATIN [Suspect]
     Active Substance: CARBOPLATIN
     Dosage: 1 UNK, Q3W, FIRST-LINE THERAPY; AUC5, ON DAY1, EVERY 3 WEEKS; FIFTH CYCLE
     Dates: start: 20190725, end: 20190925
  3. CARBOPLATIN [Suspect]
     Active Substance: CARBOPLATIN
     Dosage: 1 UNK, Q3W, FIRST-LINE THERAPY; AUC5, ON DAY1, EVERY 3 WEEKS; SECOND CYCLE
     Dates: start: 20190523, end: 20190523
  4. CARBOPLATIN [Suspect]
     Active Substance: CARBOPLATIN
     Dosage: 1 UNK, Q3W, FIRST-LINE THERAPY; AUC5, ON DAY1, EVERY 3 WEEKS; THIRD CYCLE
     Dates: start: 20190613, end: 20190613
  5. CARBOPLATIN [Suspect]
     Active Substance: CARBOPLATIN
     Dosage: 1 UNK, Q3W, FIRST-LINE THERAPY; AUC5, ON DAY1, EVERY 3 WEEKS; SIXTH CYCLE
     Dates: start: 20190822, end: 20190822
  6. CARBOPLATIN [Suspect]
     Active Substance: CARBOPLATIN
     Dosage: FIRST-LINE THERAPY; AUC5, ON DAY1, EVERY 3 WEEKS; FORTH CYCLE
     Dates: start: 20190704, end: 20190704
  7. PEMETREXED [Suspect]
     Active Substance: PEMETREXED
     Indication: Non-small cell lung cancer metastatic
     Dosage: 500 MILLIGRAM/SQ. METER, Q3W, METEREVERY 3 WEEKS ;2 CYCLES, SECOND-LINE THERAPY; FIFTH CYCLE
     Route: 065
     Dates: start: 20190725, end: 20190725
  8. PEMETREXED [Suspect]
     Active Substance: PEMETREXED
     Dosage: 500 MILLIGRAM/SQ. METER, Q3W, 500 MILLIGRAM/SQ. METEREVERY 3 WEEKS ;SECOND-LINE THERAPY; THIRD CYCLE
     Dates: start: 20190613, end: 20190613
  9. PEMETREXED [Suspect]
     Active Substance: PEMETREXED
     Dosage: 500 MILLIGRAM/SQ. METER, Q3W, SECOND-LINE THERAPY; FIRST CYCLE
     Dates: start: 20190502
  10. PEMETREXED [Suspect]
     Active Substance: PEMETREXED
     Dosage: 500 MILLIGRAM/SQ. METER, Q3W, METEREVERY 3 WEEKS ;2 CYCLES, SECOND-LINE THERAPY; SIXTH CYCLE
     Dates: start: 20190822, end: 20190822
  11. PEMETREXED [Suspect]
     Active Substance: PEMETREXED
     Dosage: 500 MILLIGRAM/SQ. METER, Q3W, 3 WEEKS ;2 CYCLES, SECOND-LINE THERAPY; FORTH CYCLE
     Dates: start: 20190704, end: 20190704
  12. PEMETREXED [Suspect]
     Active Substance: PEMETREXED
     Dosage: 500 MILLIGRAM/SQ. METER, METEREVERY 3 WEEKS ;SECOND-LINE THERAPY; SECOND CYCLE
     Dates: start: 20190523, end: 20190523
  13. DOCETAXEL [Suspect]
     Active Substance: DOCETAXEL
     Indication: Lung neoplasm malignant
     Dosage: 2 CYCLES, SECOND-LINE THERAPY
     Route: 065
     Dates: start: 20180123, end: 20180213
  14. DOCETAXEL [Suspect]
     Active Substance: DOCETAXEL
     Dosage: SECOND-LINE THERAPY
     Route: 065
     Dates: start: 20190912, end: 20191007
  15. DOCETAXEL [Suspect]
     Active Substance: DOCETAXEL
     Dosage: 60 MILLIGRAM/SQ. METER
     Route: 042
     Dates: start: 20200326, end: 20200507
  16. DOCETAXEL [Suspect]
     Active Substance: DOCETAXEL
     Dosage: 75 MILLIGRAM/SQ. METER, Q3W, THIRD CYCLE
     Dates: start: 20191028, end: 20191028
  17. DOCETAXEL [Suspect]
     Active Substance: DOCETAXEL
     Dosage: 7-9TH CYCLE
     Dates: start: 20200123, end: 20200305
  18. DOCETAXEL [Suspect]
     Active Substance: DOCETAXEL
     Dosage: 75 MILLIGRAM/SQ. METER, Q3W, SECOND CYCLE
     Dates: start: 20191007, end: 20191007
  19. DOCETAXEL [Suspect]
     Active Substance: DOCETAXEL
     Dosage: 75 MILLIGRAM/SQ. METER, Q3W
     Dates: start: 20190912, end: 20190912
  20. DOCETAXEL [Suspect]
     Active Substance: DOCETAXEL
     Dosage: 13TH CYCLE
     Dates: start: 20200526, end: 20200526
  21. DOCETAXEL [Suspect]
     Active Substance: DOCETAXEL
     Dosage: 4-6TH CYCLE
     Dates: start: 20191119, end: 20200102
  22. PEMBROLIZUMAB [Suspect]
     Active Substance: PEMBROLIZUMAB
     Indication: Non-small cell lung cancer metastatic
     Dosage: 200 MILLIGRAM, EVERY 3 WEEKS; FIRST CYCLE
     Route: 065
     Dates: start: 20190519, end: 20190519
  23. PEMBROLIZUMAB [Suspect]
     Active Substance: PEMBROLIZUMAB
     Dosage: 200 MILLIGRAM, Q3W, FORTH CYCLE
     Dates: start: 20190704, end: 20190704
  24. PEMBROLIZUMAB [Suspect]
     Active Substance: PEMBROLIZUMAB
     Dosage: 200 MILLIGRAM, Q3W, THIRD CYCLE
     Dates: start: 20200613, end: 20200613
  25. PEMBROLIZUMAB [Suspect]
     Active Substance: PEMBROLIZUMAB
     Dosage: 200 MILLIGRAM, Q3W, FIFTH CYCLE
     Dates: start: 20190725, end: 20190725
  26. PEMBROLIZUMAB [Suspect]
     Active Substance: PEMBROLIZUMAB
     Dosage: 200 MILLIGRAM, Q3W
     Dates: start: 20190822, end: 20190822
  27. NINTEDANIB [Suspect]
     Active Substance: NINTEDANIB
     Indication: Lung neoplasm malignant
     Dosage: 2 CYCLES, SECOND-LINE THERAPY
     Route: 065
     Dates: start: 20180123, end: 20180213
  28. NINTEDANIB [Suspect]
     Active Substance: NINTEDANIB
     Dosage: SECOND-LINE THERAPY
     Route: 065
     Dates: start: 20190912, end: 20191007
  29. NINTEDANIB [Suspect]
     Active Substance: NINTEDANIB
     Dosage: 100 MILLIGRAM, BID, TWO, TWICE DAILY ORAL FROM DAY 2 UNTIL DAY 21, EVERY 3 WEEKS; THIRD CYCLE
     Route: 048
     Dates: start: 20191023, end: 20191023
  30. NINTEDANIB [Suspect]
     Active Substance: NINTEDANIB
     Dosage: 13TH CYCLE
     Dates: start: 20200526, end: 20200526
  31. NINTEDANIB [Suspect]
     Active Substance: NINTEDANIB
     Dosage: 7-9TH CYCLE
     Dates: start: 20200123, end: 20200305
  32. NINTEDANIB [Suspect]
     Active Substance: NINTEDANIB
     Dosage: 200 MILLIGRAM, QD, 100MG, TWO, TWICE DAILY ORAL FROM DAY 2 UNTIL DAY 21, EVERY 3 WEEKS;
     Dates: start: 20190912, end: 20190912
  33. NINTEDANIB [Suspect]
     Active Substance: NINTEDANIB
     Dosage: 4-6TH CYCLE
     Dates: start: 20191119, end: 20200102
  34. NINTEDANIB [Suspect]
     Active Substance: NINTEDANIB
     Dosage: 100 MILLIGRAM, BID, 100MG, TWO, TWICE DAILY ORAL FROM DAY 2 UNTIL DAY 21, EVERY 3 WEEKS
     Route: 048
     Dates: start: 20191007, end: 20191007
  35. NINTEDANIB [Suspect]
     Active Substance: NINTEDANIB
     Dosage: 400 MILLIGRAM, QD,100MG, TWO, TWICE DAILY ORAL FROM DAY 2 UNTIL DAY 2-1, EVERY 3 WEEKS;
     Dates: start: 20200326, end: 20200507

REACTIONS (9)
  - Malignant neoplasm progression [Fatal]
  - Neuropathy peripheral [Unknown]
  - Nausea [Unknown]
  - Pneumonitis [Unknown]
  - Venous thrombosis [Recovering/Resolving]
  - Diarrhoea [Unknown]
  - Febrile neutropenia [Unknown]
  - Inappropriate schedule of product administration [Unknown]
  - Neutropenia [Unknown]

NARRATIVE: CASE EVENT DATE: 20180101
